FAERS Safety Report 11779438 (Version 3)
Quarter: 2015Q4

REPORT INFORMATION
  Report Type: Spontaneous
  Country: GB (occurrence: GB)
  Receive Date: 20151125
  Receipt Date: 20151222
  Transmission Date: 20160304
  Serious: Yes (Hospitalization, Other)
  Sender: FDA-Public Use
  Company Number: GB-PFIZER INC-2015402682

PATIENT
  Age: 19 Year
  Sex: Female
  Weight: 115 kg

DRUGS (1)
  1. DEPO-PROVERA [Suspect]
     Active Substance: MEDROXYPROGESTERONE ACETATE
     Indication: CONTRACEPTION
     Dosage: UNK, EVERY 3 MONTHS
     Route: 030
     Dates: start: 2013, end: 20151201

REACTIONS (2)
  - Benign intracranial hypertension [Unknown]
  - Headache [Unknown]
